FAERS Safety Report 8870275 (Version 1)
Quarter: 2012Q4

REPORT INFORMATION
  Report Type: Spontaneous
  Country: US (occurrence: None)
  Receive Date: 20121026
  Receipt Date: 20121026
  Transmission Date: 20130627
  Serious: Yes (Life-Threatening, Other)
  Sender: FDA-Public Use
  Company Number: None

PATIENT
  Age: 67 Year
  Sex: Male
  Weight: 95.26 kg

DRUGS (1)
  1. CYMBALTA 30 MG LILLY [Suspect]
     Indication: BACK PAIN
     Route: 048
     Dates: start: 20110901, end: 20121024

REACTIONS (19)
  - Inadequate analgesia [None]
  - Depression suicidal [None]
  - Panic attack [None]
  - Anxiety [None]
  - Dyspepsia [None]
  - Nausea [None]
  - Muscle spasms [None]
  - Hyperhidrosis [None]
  - Derealisation [None]
  - Confusional state [None]
  - Amnesia [None]
  - Dyspnoea [None]
  - Asthenia [None]
  - Coordination abnormal [None]
  - Dizziness [None]
  - Drug withdrawal syndrome [None]
  - Tremor [None]
  - Feelings of worthlessness [None]
  - Drug dependence [None]
